FAERS Safety Report 6158611-1 (Version None)
Quarter: 2009Q2

REPORT INFORMATION
  Report Type: 
  Country: None (occurrence: None)
  Receive Date: 20090415
  Receipt Date: 20090330
  Transmission Date: 20091009
  Serious: Yes (Death)
  Sender: FDA-Public Use
  Company Number: 2009AP001371

PATIENT
  Age: 54 Year
  Sex: Male

DRUGS (7)
  1. TRAZODONE HYDROCHLORIDE [Suspect]
  2. MIRTAZAPINE [Suspect]
  3. CALCIUM CARBONATE [Suspect]
  4. OLANZAPINE [Suspect]
  5. LOMOTIL [Suspect]
  6. ACCUTANE [Suspect]
  7. PAXIL [Suspect]

REACTIONS (5)
  - ASTHENIA [None]
  - CARDIAC ARREST [None]
  - DIZZINESS [None]
  - IRRITABILITY [None]
  - PALLOR [None]
